FAERS Safety Report 8851828 (Version 1)
Quarter: 2012Q4

REPORT INFORMATION
  Report Type: 
  Country: GB (occurrence: GB)
  Receive Date: 20121019
  Receipt Date: 20121019
  Transmission Date: 20130627
  Serious: Yes (Other)
  Sender: FDA-Public Use
  Company Number: GB-TARO PHARMACEUTICALS U.S.A., INC-2012SUN00156

PATIENT

DRUGS (2)
  1. WARFARIN [Suspect]
     Indication: ATRIAL FIBRILLATION
     Dosage: UNK
  2. MICONAZOLE [Interacting]
     Indication: ORAL CANDIDIASIS

REACTIONS (3)
  - Drug interaction [Recovered/Resolved]
  - Tongue ulceration [Recovered/Resolved]
  - International normalised ratio increased [Recovered/Resolved]
